FAERS Safety Report 21647309 (Version 2)
Quarter: 2023Q1

REPORT INFORMATION
  Report Type: Spontaneous
  Country: US (occurrence: US)
  Receive Date: 20221127
  Receipt Date: 20230327
  Transmission Date: 20230417
  Serious: Yes (Hospitalization, Other)
  Sender: FDA-Public Use
  Company Number: US-BRISTOL-MYERS SQUIBB COMPANY-2022-141957

PATIENT
  Age: 72 Year
  Sex: Male
  Weight: 101.6 kg

DRUGS (1)
  1. REVLIMID [Suspect]
     Active Substance: LENALIDOMIDE
     Indication: Plasma cell myeloma
     Dosage: 2W, 1W OFF-EXPIRATION DATE-31-AUG-2024
     Route: 048
     Dates: start: 20230301

REACTIONS (4)
  - Large intestinal ulcer haemorrhage [Unknown]
  - Varicose vein [Unknown]
  - Off label use [Unknown]
  - Urinary tract infection [Recovering/Resolving]

NARRATIVE: CASE EVENT DATE: 20221101
